FAERS Safety Report 8731698 (Version 2)
Quarter: 2012Q4

REPORT INFORMATION
  Report Type: Report from Study
  Country: GB (occurrence: GB)
  Receive Date: 20120820
  Receipt Date: 20120907
  Transmission Date: 20130627
  Serious: Yes (Hospitalization)
  Sender: FDA-Public Use
  Company Number: GB-SANOFI-AVENTIS-2012SA058476

PATIENT
  Age: 68 Year
  Sex: Female

DRUGS (9)
  1. CABAZITAXEL [Suspect]
     Indication: ADENOCARCINOMA OF THE CERVIX
     Route: 041
     Dates: start: 20120803, end: 20120803
  2. CABAZITAXEL [Suspect]
     Indication: ADENOCARCINOMA OF THE CERVIX
     Route: 041
     Dates: start: 20120713, end: 20120713
  3. MST [Concomitant]
     Route: 048
  4. ORAMORPH [Concomitant]
     Route: 048
  5. PARACETAMOL [Concomitant]
     Route: 048
  6. ANALGESICS [Concomitant]
     Route: 003
  7. DEXAMETHASONE [Concomitant]
     Route: 048
  8. CLEXANE [Concomitant]
     Route: 058
  9. OMEPRAZOLE [Concomitant]
     Route: 048

REACTIONS (1)
  - Diarrhoea [Recovered/Resolved]
